FAERS Safety Report 24051077 (Version 1)
Quarter: 2024Q3

REPORT INFORMATION
  Report Type: Spontaneous
  Country: FR (occurrence: FR)
  Receive Date: 20240704
  Receipt Date: 20240704
  Transmission Date: 20241016
  Serious: Yes (Hospitalization, Other)
  Sender: UCB
  Company Number: None

PATIENT
  Age: 61 Year
  Sex: Female

DRUGS (2)
  1. KEPPRA [Suspect]
     Active Substance: LEVETIRACETAM
     Indication: Epilepsy
     Dosage: 1 DOSAGE FORM
     Route: 048
     Dates: start: 2022
  2. TEGRETOL [Suspect]
     Active Substance: CARBAMAZEPINE
     Indication: Epilepsy
     Dosage: 1 DOSAGE FORM
     Route: 048
     Dates: start: 2022

REACTIONS (1)
  - Tubulointerstitial nephritis [Not Recovered/Not Resolved]

NARRATIVE: CASE EVENT DATE: 20240502
